FAERS Safety Report 7985853-2 (Version None)
Quarter: 2011Q4

REPORT INFORMATION
  Report Type: 
  Country: None (occurrence: None)
  Receive Date: 20111214
  Receipt Date: 20111130
  Transmission Date: 20120403
  Serious: Yes (Hospitalization, Other)
  Sender: FDA-Public Use
  Company Number: 2009AL002577

PATIENT
  Age: 48 Year
  Sex: Female
  Weight: 99.7913 kg

DRUGS (78)
  1. AVANDIA [Concomitant]
  2. BUMEX [Concomitant]
  3. CLONIDINE HCL [Concomitant]
  4. DITROPAN XL [Concomitant]
  5. FLUTICASONE FUROATE [Concomitant]
  6. LIPITOR [Concomitant]
  7. METFORMIN HCL [Concomitant]
  8. NIASPAN [Concomitant]
  9. PAXIL CR [Concomitant]
  10. HYDROCHLOROTHIAZIDE [Concomitant]
  11. WELLBUTRIN SR [Concomitant]
  12. ATARAX [Concomitant]
  13. BUTALBITAL [Concomitant]
  14. DILEX G [Concomitant]
  15. GEMFIBROZIL [Concomitant]
  16. GI COCKTAIL [Concomitant]
  17. LORTAB [Concomitant]
  18. METOLAZONE [Concomitant]
  19. MIRALAX [Concomitant]
  20. SOLU-MEDROL [Concomitant]
  21. TRICOR [Concomitant]
  22. UROGESIC [Concomitant]
  23. ACTOS [Concomitant]
  24. ASPIRIN [Concomitant]
  25. ATUSS HD [Concomitant]
  26. GUAIFENESIN [Concomitant]
  27. CEPHADYN [Concomitant]
  28. CIPROFLOXACIN [Concomitant]
  29. DIALEX [Concomitant]
  30. POTASSIUM CHLORIDE [Concomitant]
  31. LEVAQUIN [Concomitant]
  32. MUCINEX [Concomitant]
  33. NICOTINE [Concomitant]
  34. PLAVIX [Concomitant]
  35. ROCEPHIN [Concomitant]
  36. SUDAFED 12 HOUR [Concomitant]
  37. ATROVENT [Concomitant]
  38. CHANTIX [Concomitant]
  39. LANTUS [Concomitant]
  40. SUCRALFATE [Concomitant]
  41. XANAX [Concomitant]
  42. CELEXA [Concomitant]
  43. APAP TAB [Concomitant]
  44. DEXPACK [Concomitant]
  45. OXYCODONE HCL AND ACETAMINOPHEN [Concomitant]
  46. HUMULIN R [Concomitant]
  47. LORAZEPAM [Concomitant]
  48. NEXIUM [Concomitant]
  49. PREDNISONE [Concomitant]
  50. REGLAN [Concomitant]
  51. DIGOXIN [Suspect]
     Indication: CARDIAC FAILURE CONGESTIVE
     Dosage: .25 MG;QD;PO
     Route: 048
  52. BUPROPION HCL [Concomitant]
  53. COMBIVENT [Concomitant]
  54. COZAAR [Concomitant]
  55. GLUCOPHAGE [Concomitant]
  56. SPIRIVA [Concomitant]
  57. ZOLOFT [Concomitant]
  58. ALBUTEROL [Concomitant]
  59. ANTIVERT [Concomitant]
  60. AVANDAMET [Concomitant]
  61. CRESTOR [Concomitant]
  62. GLUCOTROL XL [Concomitant]
  63. LASIX [Concomitant]
  64. NITROGLYCERIN [Concomitant]
  65. NYSTATIN [Concomitant]
  66. PROTONIX [Concomitant]
  67. RU-TUSS [Concomitant]
  68. SINGULAIR [Concomitant]
  69. THEO-DUR [Concomitant]
  70. TRIAMTERENE [Concomitant]
  71. ADVAIR DISKUS 100/50 [Concomitant]
  72. AVELOX [Concomitant]
  73. FLOVENT [Concomitant]
  74. GLIPIZIDE [Concomitant]
  75. LUNESTA [Concomitant]
  76. SEREVENT [Concomitant]
  77. TESSALON [Concomitant]
  78. ZITHROMAX [Concomitant]

REACTIONS (58)
  - DYSPHAGIA [None]
  - PULMONARY FIBROSIS [None]
  - HYPONATRAEMIA [None]
  - TREATMENT NONCOMPLIANCE [None]
  - NECK PAIN [None]
  - MITRAL VALVE PROLAPSE [None]
  - BACK PAIN [None]
  - BRADYCARDIA [None]
  - DYSPHONIA [None]
  - ABDOMINAL PAIN UPPER [None]
  - EMOTIONAL DISORDER [None]
  - ASTHMA [None]
  - APPENDICEAL ABSCESS [None]
  - WEIGHT DECREASED [None]
  - BALANITIS CANDIDA [None]
  - UPPER RESPIRATORY TRACT INFECTION [None]
  - DIABETES MELLITUS INADEQUATE CONTROL [None]
  - CARDIAC FAILURE CONGESTIVE [None]
  - CORONARY ARTERY DISEASE [None]
  - HYPERTENSION [None]
  - STRESS URINARY INCONTINENCE [None]
  - SLEEP APNOEA SYNDROME [None]
  - PNEUMONIA [None]
  - TRICUSPID VALVE INCOMPETENCE [None]
  - BLOOD CHOLESTEROL INCREASED [None]
  - BLOOD TRIGLYCERIDES INCREASED [None]
  - PAIN [None]
  - ANXIETY [None]
  - CHRONIC OBSTRUCTIVE PULMONARY DISEASE [None]
  - COLON ADENOMA [None]
  - GASTROOESOPHAGEAL REFLUX DISEASE [None]
  - HEART INJURY [None]
  - BRONCHITIS CHRONIC [None]
  - EMPHYSEMA [None]
  - TRICHOMONIASIS [None]
  - DEPRESSION [None]
  - OBESITY [None]
  - CLAUSTROPHOBIA [None]
  - CARDIOVASCULAR DISORDER [None]
  - CAROTID ARTERIOSCLEROSIS [None]
  - MULTIPLE INJURIES [None]
  - HYPOKALAEMIA [None]
  - MENTAL DISORDER [None]
  - AMNESTIC DISORDER [None]
  - APPENDICITIS [None]
  - ESCHERICHIA INFECTION [None]
  - HEART RATE DECREASED [None]
  - MUSCULOSKELETAL CHEST PAIN [None]
  - RESPIRATORY DISTRESS [None]
  - ACUTE INTERSTITIAL PNEUMONITIS [None]
  - CORONARY ARTERY RESTENOSIS [None]
  - ECONOMIC PROBLEM [None]
  - NERVOUSNESS [None]
  - SINUSITIS [None]
  - IMPAIRED WORK ABILITY [None]
  - HYPOCALCAEMIA [None]
  - BRONCHITIS VIRAL [None]
  - NICOTINE DEPENDENCE [None]
